FAERS Safety Report 13118490 (Version 1)
Quarter: 2017Q1

REPORT INFORMATION
  Report Type: Spontaneous
  Country: US (occurrence: US)
  Receive Date: 20170116
  Receipt Date: 20170116
  Transmission Date: 20170428
  Serious: Yes (Other)
  Sender: FDA-Public Use
  Company Number: US-SA-2017SA002520

PATIENT

DRUGS (1)
  1. DOCETAXEL. [Suspect]
     Active Substance: DOCETAXEL
     Indication: NASOPHARYNGEAL CANCER RECURRENT
     Route: 065

REACTIONS (4)
  - Osteoradionecrosis [Unknown]
  - Dysphagia [Not Recovered/Not Resolved]
  - Mucosal ulceration [Unknown]
  - Soft tissue necrosis [Unknown]
